FAERS Safety Report 7204232-9 (Version None)
Quarter: 2010Q4

REPORT INFORMATION
  Report Type: 
  Country: None (occurrence: None)
  Receive Date: 20101220
  Receipt Date: 20101203
  Transmission Date: 20110411
  Serious: Yes (Hospitalization)
  Sender: FDA-Public Use
  Company Number: 014681

PATIENT
  Sex: Female

DRUGS (20)
  1. CERTOLIZUMAB PEGOL (CERTOLIZUMAB PEGOL) [Suspect]
     Indication: RHEUMATOID ARTHRITIS
     Dosage: SEE IMAGE
     Route: 058
     Dates: start: 20090708, end: 20100107
  2. CERTOLIZUMAB PEGOL (CERTOLIZUMAB PEGOL) [Suspect]
     Indication: RHEUMATOID ARTHRITIS
     Dosage: SEE IMAGE
     Route: 058
     Dates: start: 20100121, end: 20100609
  3. CERTOLIZUMAB PEGOL (CERTOLIZUMAB PEGOL) [Suspect]
     Indication: RHEUMATOID ARTHRITIS
     Dosage: SEE IMAGE
     Route: 058
     Dates: start: 20100804
  4. CERTOLIZUMAB PEGOL (CERTOLIZUMAB PEGOL) [Suspect]
     Indication: RHEUMATOID ARTHRITIS
     Dosage: SEE IMAGE
     Route: 058
     Dates: start: 20101119
  5. METHOTREXATE [Suspect]
     Indication: RHEUMATOID ARTHRITIS
     Dosage: (7.5 MG ORAL) ; (7.5 MG ORAL)
     Route: 048
     Dates: start: 20090509, end: 20100619
  6. METHOTREXATE [Suspect]
     Indication: RHEUMATOID ARTHRITIS
     Dosage: (7.5 MG ORAL) ; (7.5 MG ORAL)
     Route: 048
     Dates: start: 20100724
  7. FOLIC ACID [Concomitant]
  8. PREDNISOLONE [Concomitant]
  9. CELECOXIB [Concomitant]
  10. DICLOFENAC SODIUM [Concomitant]
  11. TEPRENONE [Concomitant]
  12. LANSOPRAZOLE [Concomitant]
  13. FERROUS FUMARATE [Concomitant]
  14. ALUMINIUM HYDROXIDE-MAGNESIUM CARBONATE GEL [Concomitant]
  15. DIFLUCORTOLONE VALERATE [Concomitant]
  16. LEVOFLOXACIN [Concomitant]
  17. REBAMIPIDE [Concomitant]
  18. OTSUJITOU [Concomitant]
  19. LOXOPROFEN SODIUM [Concomitant]
  20. .. [Concomitant]

REACTIONS (14)
  - ACROCHORDON [None]
  - BACK PAIN [None]
  - BACTERIAL TEST POSITIVE [None]
  - C-REACTIVE PROTEIN INCREASED [None]
  - HAEMORRHOIDAL HAEMORRHAGE [None]
  - HEADACHE [None]
  - MALAISE [None]
  - NEPHROLITHIASIS [None]
  - PAINFUL DEFAECATION [None]
  - PROTEIN URINE PRESENT [None]
  - PYELONEPHRITIS [None]
  - PYREXIA [None]
  - RENAL ABSCESS [None]
  - RENAL HYPERTROPHY [None]
